FAERS Safety Report 23151978 (Version 3)
Quarter: 2024Q1

REPORT INFORMATION
  Report Type: Report from Study
  Country: US (occurrence: US)
  Receive Date: 20231107
  Receipt Date: 20240125
  Transmission Date: 20240410
  Serious: Yes (Hospitalization, Other)
  Sender: FDA-Public Use
  Company Number: US-ABBVIE-5483517

PATIENT
  Sex: Female
  Weight: 74 kg

DRUGS (8)
  1. SKYRIZI [Suspect]
     Active Substance: RISANKIZUMAB-RZAA
     Indication: Psoriatic arthropathy
     Dosage: FORM STRENGTH: 150 MILLIGRAM, ?WEEK 4
     Route: 058
     Dates: start: 20230906, end: 20230906
  2. SKYRIZI [Suspect]
     Active Substance: RISANKIZUMAB-RZAA
     Dosage: FORM STRENGTH: 150 MILLIGRAM, ?WEEK 0
     Route: 058
     Dates: start: 20230809, end: 20230809
  3. SKYRIZI [Suspect]
     Active Substance: RISANKIZUMAB-RZAA
     Dosage: FORM STRENGTH: 150 MILLIGRAM
     Route: 058
     Dates: start: 20231129
  4. BASAGLAR [Concomitant]
     Active Substance: INSULIN GLARGINE
     Indication: Diabetes mellitus
     Dosage: START DATE TEXT: 9 MONTHS AGO
     Route: 065
  5. ATORVASTATIN CALCIUM [Concomitant]
     Active Substance: ATORVASTATIN CALCIUM
     Indication: Blood cholesterol increased
     Dosage: START DATE TEXT: 10 YEARS AGO
     Route: 065
  6. VITAMIN D3 [Concomitant]
     Active Substance: CHOLECALCIFEROL
     Indication: Vitamin supplementation
     Route: 065
  7. JANUVIA [Concomitant]
     Active Substance: SITAGLIPTIN PHOSPHATE
     Indication: Diabetes mellitus
     Dosage: START DATE TEXT: 10 YEARS AGO
     Route: 065
  8. SPIRONOLACTONE [Concomitant]
     Active Substance: SPIRONOLACTONE
     Indication: Seborrhoea
     Dosage: START DATE TEXT: 10 YEARS AGO
     Route: 065

REACTIONS (7)
  - Bell^s palsy [Recovered/Resolved]
  - Microvascular cranial nerve palsy [Recovering/Resolving]
  - Eye disorder [Recovered/Resolved]
  - Diplopia [Recovering/Resolving]
  - Urticaria [Recovering/Resolving]
  - Multiple allergies [Unknown]
  - Bell^s palsy [Recovering/Resolving]

NARRATIVE: CASE EVENT DATE: 20230101
